FAERS Safety Report 6423269-0 (Version None)
Quarter: 2009Q4

REPORT INFORMATION
  Report Type: 
  Country: None (occurrence: None)
  Receive Date: 20091102
  Receipt Date: 20091022
  Transmission Date: 20100525
  Serious: Yes (Death, Other)
  Sender: FDA-Public Use
  Company Number: FR-ELI_LILLY_AND_COMPANY-FR200910005678

PATIENT
  Age: 37 Year
  Sex: Female

DRUGS (6)
  1. ZYPREXA [Suspect]
     Indication: BIPOLAR DISORDER
     Dosage: 20 MG, 2/D
     Route: 048
  2. DEPAKOTE [Concomitant]
     Indication: BIPOLAR DISORDER
     Dosage: 2250 MG, DAILY (1/D)
     Route: 048
  3. RIVOTRIL [Concomitant]
     Indication: BIPOLAR DISORDER
     Dosage: 30 MG, DAILY (1/D)
     Route: 048
  4. TERCIAN [Concomitant]
     Indication: BIPOLAR DISORDER
     Dosage: 150 MG, DAILY (1/D)
     Route: 048
  5. CLOPIXOL [Concomitant]
     Indication: BIPOLAR DISORDER
     Dosage: 300 MG, DAILY (1/D)
     Route: 048
  6. THERALENE [Concomitant]
     Indication: BIPOLAR DISORDER
     Dosage: 60 MG, DAILY (1/D)
     Route: 048

REACTIONS (3)
  - DEATH [None]
  - DRUG INTERACTION [None]
  - OVERDOSE [None]
